FAERS Safety Report 12710257 (Version 2)
Quarter: 2017Q1

REPORT INFORMATION
  Report Type: Report from Study
  Country: CA (occurrence: CA)
  Receive Date: 20160902
  Receipt Date: 20170307
  Transmission Date: 20170428
  Serious: Yes (Hospitalization, Other)
  Sender: FDA-Public Use
  Company Number: PHHY2015CA041502

PATIENT
  Age: 55 Year
  Sex: Female

DRUGS (6)
  1. JAKAVI [Suspect]
     Active Substance: RUXOLITINIB
     Dosage: 15 MG, BID
     Route: 048
  2. JAKAVI [Suspect]
     Active Substance: RUXOLITINIB
     Dosage: 10 MG, QD
     Route: 048
     Dates: start: 20150512
  3. IRON METAL [Concomitant]
     Indication: PRODUCT USED FOR UNKNOWN INDICATION
     Route: 065
  4. PREDNISONE. [Suspect]
     Active Substance: PREDNISONE
     Indication: PRODUCT USED FOR UNKNOWN INDICATION
     Route: 065
  5. EPREX [Concomitant]
     Active Substance: ERYTHROPOIETIN
     Indication: PRODUCT USED FOR UNKNOWN INDICATION
     Dosage: 60000 UNITS THRICE A WEEK
     Route: 065
  6. JAKAVI [Suspect]
     Active Substance: RUXOLITINIB
     Indication: MYELOFIBROSIS
     Dosage: 5 MG, QD
     Route: 048
     Dates: start: 20150325

REACTIONS (26)
  - Dehydration [Unknown]
  - Dizziness [Unknown]
  - White blood cell count decreased [Unknown]
  - Concomitant disease aggravated [Unknown]
  - Glossodynia [Unknown]
  - Gingival pain [Unknown]
  - Asthenia [Unknown]
  - Diarrhoea [Unknown]
  - Polychondritis [Unknown]
  - Inflammation [Unknown]
  - Stomatitis [Unknown]
  - Hypotension [Unknown]
  - Weight increased [Unknown]
  - Haemoglobin decreased [Unknown]
  - Platelet count increased [Unknown]
  - Flatulence [Unknown]
  - Full blood count increased [Unknown]
  - Splenomegaly [Unknown]
  - Inappropriate schedule of drug administration [Unknown]
  - Viral infection [Unknown]
  - Red blood cell count decreased [Unknown]
  - Fatigue [Unknown]
  - Pain [Unknown]
  - Fluid retention [Unknown]
  - Abdominal distension [Unknown]
  - Contusion [Unknown]

NARRATIVE: CASE EVENT DATE: 201512
